FAERS Safety Report 8440424-9 (Version None)
Quarter: 2012Q2

REPORT INFORMATION
  Report Type: 
  Country: None (occurrence: None)
  Receive Date: 20120615
  Receipt Date: 20120611
  Transmission Date: 20120825
  Serious: Yes (Hospitalization)
  Sender: FDA-Public Use
  Company Number: CN-GILEAD-2012-0052592

PATIENT
  Sex: Male

DRUGS (1)
  1. TENOFOVIR DISOPROXIL FUMARATE [Suspect]
     Indication: HEPATITIS B

REACTIONS (2)
  - GASTRITIS [None]
  - REFLUX GASTRITIS [None]
